FAERS Safety Report 5890808-8 (Version None)
Quarter: 2008Q3

REPORT INFORMATION
  Report Type: 
  Country: None (occurrence: None)
  Receive Date: 20080922
  Receipt Date: 20080909
  Transmission Date: 20090109
  Serious: Yes (Other)
  Sender: FDA-Public Use
  Company Number: GB-AMGEN-US308579

PATIENT
  Age: 32 Year
  Sex: Female

DRUGS (3)
  1. ENBREL [Suspect]
     Indication: RHEUMATOID ARTHRITIS
     Route: 058
     Dates: start: 20010201
  2. PREDNISOLONE [Concomitant]
     Dates: end: 20010201
  3. PREDNISOLONE [Concomitant]

REACTIONS (2)
  - AUTOANTIBODY POSITIVE [None]
  - ERYTHEMA MULTIFORME [None]
